FAERS Safety Report 5521462-2 (Version None)
Quarter: 2007Q4

REPORT INFORMATION
  Report Type: 
  Country: None (occurrence: None)
  Receive Date: 20071119
  Receipt Date: 20071112
  Transmission Date: 20080405
  Serious: Yes (Hospitalization, Other)
  Sender: FDA-Public Use
  Company Number: US-PFIZER INC-2007078488

PATIENT
  Sex: Male
  Weight: 86.363 kg

DRUGS (3)
  1. VIAGRA [Suspect]
     Indication: ERECTILE DYSFUNCTION
  2. ACETYLSALICYLIC ACID SRT [Concomitant]
  3. VITAMIN CAP [Concomitant]

REACTIONS (5)
  - CORONARY ARTERY BYPASS [None]
  - DRUG INEFFECTIVE [None]
  - FLUSHING [None]
  - HEADACHE [None]
  - PLEURISY [None]
